FAERS Safety Report 7654653-5 (Version None)
Quarter: 2011Q3

REPORT INFORMATION
  Report Type: 
  Country: None (occurrence: None)
  Receive Date: 20110804
  Receipt Date: 20110728
  Transmission Date: 20111222
  Serious: Yes (Hospitalization)
  Sender: FDA-Public Use
  Company Number: JO-BRISTOL-MYERS SQUIBB COMPANY-15487002

PATIENT
  Age: 27 Year
  Sex: Female
  Weight: 57 kg

DRUGS (6)
  1. FAMOTIDINE [Concomitant]
  2. LOXONIN [Concomitant]
     Indication: RHEUMATOID ARTHRITIS
  3. ORENCIA [Suspect]
     Indication: RHEUMATOID ARTHRITIS
     Dosage: LAST DOSE02DEC10,REST ON 9FEB11,23FEB,9MAR,6APR,11MAY,8JUN11.
     Route: 041
     Dates: start: 20101117
  4. PREDNISOLONE [Suspect]
     Indication: RHEUMATOID ARTHRITIS
  5. ASPIRIN [Concomitant]
  6. APLACE [Concomitant]

REACTIONS (2)
  - ILEUS [None]
  - INFECTIOUS PERITONITIS [None]
